FAERS Safety Report 7934974-9 (Version None)
Quarter: 2011Q4

REPORT INFORMATION
  Report Type: 
  Country: None (occurrence: None)
  Receive Date: 20111122
  Receipt Date: 20111105
  Transmission Date: 20120403
  Serious: No
  Sender: FDA-Public Use
  Company Number: US-B.I. PHARMACEUTICALS,INC./RIDGEFIELD-2011-BP-25675BP

PATIENT
  Sex: Male

DRUGS (3)
  1. ANTIHYPERTNESIVE [Concomitant]
  2. ZANTAC 150 [Suspect]
     Indication: DYSPEPSIA
     Dosage: 150 MG
     Route: 048
     Dates: start: 20111105
  3. ZANTAC 75 [Suspect]
     Indication: DYSPEPSIA
     Dosage: 150 MG
     Route: 048
     Dates: start: 20111106

REACTIONS (2)
  - ABDOMINAL DISTENSION [None]
  - MUSCLE SPASMS [None]
